FAERS Safety Report 10156762 (Version 1)
Quarter: 2014Q2

REPORT INFORMATION
  Report Type: Spontaneous
  Country: US (occurrence: None)
  Receive Date: 20140506
  Receipt Date: 20140506
  Transmission Date: 20141212
  Serious: Yes (Hospitalization)
  Sender: FDA-Public Use
  Company Number: None

PATIENT
  Age: 66 Year
  Sex: Male

DRUGS (11)
  1. PHENYTOIN [Suspect]
     Indication: CONVULSION PROPHYLAXIS
     Dosage: 300MG, TWO TIMES DAILY, PO
     Route: 048
     Dates: start: 20130308, end: 20130322
  2. CEFEPIME [Concomitant]
  3. DEXAMETHASONE [Concomitant]
  4. CEPHALEXIN [Concomitant]
  5. ENOXAPARIN [Concomitant]
  6. ESCITALOPRAM [Concomitant]
  7. INSULIN [Concomitant]
  8. LANSOPRAZOLE [Concomitant]
  9. LEVETIRACETAM [Concomitant]
  10. NVSTATIN [Concomitant]
  11. SIMVASTATIN [Concomitant]

REACTIONS (2)
  - Mental status changes [None]
  - Anticonvulsant drug level increased [None]
